FAERS Safety Report 8186127-X (Version None)
Quarter: 2012Q1

REPORT INFORMATION
  Report Type: 
  Country: None (occurrence: None)
  Receive Date: 20120301
  Receipt Date: 20120216
  Transmission Date: 20120608
  Serious: Yes (Other)
  Sender: FDA-Public Use
  Company Number: LTI2012A00051

PATIENT
  Age: 81 Year
  Sex: Male

DRUGS (1)
  1. LANSOPRAZOLE [Suspect]
     Indication: PRODUCT USED FOR UNKNOWN INDICATION
     Dosage: (15 MG,1 IN 1 D) ORAL
     Route: 048

REACTIONS (2)
  - LIP OEDEMA [None]
  - FACE OEDEMA [None]
